FAERS Safety Report 16366838 (Version 7)
Quarter: 2023Q1

REPORT INFORMATION
  Report Type: Report from Study
  Country: PL (occurrence: None)
  Receive Date: 20190529
  Receipt Date: 20230306
  Transmission Date: 20230417
  Serious: Yes (Life-Threatening, Hospitalization)
  Sender: FDA-Public Use
  Company Number: PL-ROCHE-2280828

PATIENT
  Age: 56 Year
  Sex: Female
  Weight: 83 kg

DRUGS (24)
  1. INTERFERON BETA-1A [Suspect]
     Active Substance: INTERFERON BETA-1A
     Indication: Relapsing-remitting multiple sclerosis
     Dosage: (THREE TIMES PER WEEK (WITH PLACEBO INFUSIONS MATCHING OCRELIZUMAB INFUSIONS EVERY 24 WEEKS) AS PER
     Route: 058
     Dates: start: 20120419
  2. PLACEBO [Suspect]
     Active Substance: UNSPECIFIED INGREDIENT
     Indication: Relapsing-remitting multiple sclerosis
     Dosage: ON DAYS 1 AND 15 FOR THE FIRST DOSE AND AS A SINGLE INFUSION OF 600 MG FOR ALL SUBSEQUENT INFUSIONS
     Route: 042
     Dates: start: 20120419, end: 20120419
  3. PLACEBO [Suspect]
     Active Substance: UNSPECIFIED INGREDIENT
     Dosage: WEEK 2
     Route: 042
     Dates: start: 20120502, end: 20120502
  4. PLACEBO [Suspect]
     Active Substance: UNSPECIFIED INGREDIENT
     Dosage: WEEK 24
     Route: 042
     Dates: start: 20121004, end: 20121004
  5. PLACEBO [Suspect]
     Active Substance: UNSPECIFIED INGREDIENT
     Dosage: WEEK 48
     Route: 042
     Dates: start: 20130321, end: 20130321
  6. PLACEBO [Suspect]
     Active Substance: UNSPECIFIED INGREDIENT
     Dosage: WEEK 72
     Route: 042
     Dates: start: 20130904, end: 20130904
  7. OCRELIZUMAB [Suspect]
     Active Substance: OCRELIZUMAB
     Indication: Relapsing-remitting multiple sclerosis
     Dosage: WEEK 0 (260 ML). NEXT DOSE WAS RECEIVED ON 17/MAR/2014 (WEEK 2, 260 ML)?ON DAYS 1 AND 15 FOR THE FIR
     Route: 042
     Dates: start: 20140303, end: 20140303
  8. OCRELIZUMAB [Suspect]
     Active Substance: OCRELIZUMAB
     Dosage: WEEK 24, 520 ML?SUBSEQUENT DOSES WERE RECEIVED ON 03/FEB/2015 (LOT NUMBER: 1145322, WEEK 48), 24/JUL
     Route: 042
     Dates: start: 20140814, end: 20140814
  9. ACETAMINOPHEN [Concomitant]
     Active Substance: ACETAMINOPHEN
     Indication: Premedication
     Dosage: SUBSEQUENT DOSES ON 02/MAY/2012, 04/OCT/2012, 21/MAR/2013, 04/SEP/2013, 03/MAR/2014, 17/MAR/2014, 14
     Dates: start: 20120419
  10. METHYLPREDNISOLONE [Concomitant]
     Active Substance: METHYLPREDNISOLONE
     Indication: Premedication
     Dosage: SUBSEQUENT DOSES ON 02/MAY/2012, 04/OCT/2012, 21/MAR/2013, 04/SEP/2013, 03/MAR/2014, 17/MAR/2014, 14
     Dates: start: 20120419
  11. CETIRIZINE HYDROCHLORIDE [Concomitant]
     Active Substance: CETIRIZINE HYDROCHLORIDE
     Indication: Premedication
     Dosage: SUBSEQUENT DOSES ON 02/MAY/2012, 04/OCT/2012, 21/MAR/2013, 04/SEP/2013, 03/MAR/2014, 17/MAR/2014, 14
     Dates: start: 20120419
  12. CORONAL [Concomitant]
     Indication: Coronary artery disease
     Dates: start: 20120224
  13. ROSUVASTATIN CALCIUM [Concomitant]
     Active Substance: ROSUVASTATIN CALCIUM
     Indication: Hyperlipidaemia
     Dates: start: 20171011
  14. ROSUVASTATIN CALCIUM [Concomitant]
     Active Substance: ROSUVASTATIN CALCIUM
     Dates: start: 20120224, end: 20130322
  15. ROSUVASTATIN CALCIUM [Concomitant]
     Active Substance: ROSUVASTATIN CALCIUM
     Dates: start: 20140212, end: 20150122
  16. FOLIC ACID [Concomitant]
     Active Substance: FOLIC ACID
     Indication: Rheumatoid arthritis
     Dates: start: 20130731
  17. METHOTREXATE [Concomitant]
     Active Substance: METHOTREXATE
     Indication: Rheumatoid arthritis
     Dates: start: 20130731, end: 20160821
  18. METHOTREXATE [Concomitant]
     Active Substance: METHOTREXATE
     Dates: start: 20160822
  19. METHOTREXATE [Concomitant]
     Active Substance: METHOTREXATE
     Dates: start: 202004
  20. IBUPROFEN [Concomitant]
     Active Substance: IBUPROFEN
     Indication: Tension headache
     Dates: start: 2009
  21. PANTOPRAZOLE SODIUM [Concomitant]
     Active Substance: PANTOPRAZOLE SODIUM
     Dates: start: 20190303, end: 20190303
  22. ACARD [Concomitant]
     Dates: start: 20180320
  23. LAMOTRIGINE [Concomitant]
     Active Substance: LAMOTRIGINE
     Indication: Affective disorder
     Dates: start: 20200804
  24. MELOXICAM [Concomitant]
     Active Substance: MELOXICAM
     Indication: Contusion
     Dates: start: 20200126, end: 20200203

REACTIONS (1)
  - Pericarditis [Recovered/Resolved]

NARRATIVE: CASE EVENT DATE: 20190303
